FAERS Safety Report 22131797 (Version 5)
Quarter: 2023Q2

REPORT INFORMATION
  Report Type: Spontaneous
  Country: AT (occurrence: AT)
  Receive Date: 20230323
  Receipt Date: 20230417
  Transmission Date: 20230722
  Serious: Yes (Other)
  Sender: FDA-Public Use
  Company Number: AT-BAXTER-2023BAX011989

PATIENT
  Sex: Male

DRUGS (14)
  1. IMBRUVICA [Suspect]
     Active Substance: IBRUTINIB
     Indication: Mantle cell lymphoma
     Dosage: DRUG SEPARATE DOSAGE NUMBER 1
     Route: 048
     Dates: start: 202206, end: 202207
  2. CYTARABINE [Suspect]
     Active Substance: CYTARABINE
     Indication: Mantle cell lymphoma
     Dosage: DRUG SEPARATE DOSAGE NUMBER 1
     Route: 065
  3. ETOPOSIDE [Suspect]
     Active Substance: ETOPOSIDE
     Indication: Mantle cell lymphoma
     Dosage: DRUG SEPARATE DOSAGE NUMBER 1
     Route: 065
  4. CISPLATIN [Suspect]
     Active Substance: CISPLATIN
     Indication: Mantle cell lymphoma
     Dosage: DRUG SEPARATE DOSAGE NUMBER 1
     Route: 065
  5. RITUXIMAB [Suspect]
     Active Substance: RITUXIMAB
     Indication: Mantle cell lymphoma
     Dosage: DRUG SEPARATE DOSAGE NUMBER 1
     Route: 058
     Dates: start: 201909, end: 202201
  6. CARMUSTINE [Suspect]
     Active Substance: CARMUSTINE
     Indication: Mantle cell lymphoma
     Dosage: DRUG SEPARATE DOSAGE NUMBER 1
     Route: 065
  7. PREDNISOLONE [Suspect]
     Active Substance: PREDNISOLONE
     Indication: Mantle cell lymphoma
     Dosage: DRUG SEPARATE DOSAGE NUMBER 1
     Route: 065
     Dates: start: 201909, end: 202201
  8. DEXAMETHASONE [Suspect]
     Active Substance: DEXAMETHASONE
     Indication: Mantle cell lymphoma
     Dosage: DRUG SEPARATE DOSAGE NUMBER 1
     Route: 050
  9. CYCLOPHOSPHAMIDE [Suspect]
     Active Substance: CYCLOPHOSPHAMIDE
     Indication: Mantle cell lymphoma
     Dosage: DRUG SEPARATE DOSAGE NUMBER 1
     Route: 050
     Dates: start: 201909, end: 202201
  10. DOXORUBICIN [Suspect]
     Active Substance: DOXORUBICIN
     Indication: Mantle cell lymphoma
     Dosage: DRUG SEPARATE DOSAGE NUMBER 1
     Route: 065
     Dates: start: 201909, end: 202201
  11. VENETOCLAX [Suspect]
     Active Substance: VENETOCLAX
     Indication: Mantle cell lymphoma
     Dosage: DRUG SEPARATE DOSAGE NUMBER 1
     Route: 048
     Dates: start: 202206, end: 202207
  12. VINCRISTINE [Suspect]
     Active Substance: VINCRISTINE
     Indication: Mantle cell lymphoma
     Dosage: DRUG SEPARATE DOSAGE NUMBER 1
     Route: 065
     Dates: start: 201909, end: 202201
  13. VINCRISTINE [Suspect]
     Active Substance: VINCRISTINE
     Indication: Mantle cell lymphoma
     Dosage: DRUG SEPARATE DOSAGE NUMBER 1
     Route: 065
     Dates: start: 201909, end: 202201
  14. MELPHALAN [Suspect]
     Active Substance: MELPHALAN
     Indication: Mantle cell lymphoma
     Dosage: DRUG SEPARATE DOSAGE NUMBER 1
     Route: 050

REACTIONS (3)
  - Mantle cell lymphoma [Unknown]
  - Blood lactate dehydrogenase increased [Unknown]
  - Off label use [Unknown]
